FAERS Safety Report 23728897 (Version 1)
Quarter: 2024Q2

REPORT INFORMATION
  Report Type: Spontaneous
  Country: US (occurrence: US)
  Receive Date: 20240410
  Receipt Date: 20240410
  Transmission Date: 20240716
  Serious: No
  Sender: FDA-Public Use
  Company Number: US-NEUROCRINE BIOSCIENCES INC.-2024NBI03220

PATIENT
  Age: 28 Year
  Sex: Female

DRUGS (2)
  1. INGREZZA [Suspect]
     Active Substance: VALBENAZINE
     Indication: Tardive dyskinesia
     Dosage: 40 MILLIGRAM, QD, SAMPLES
     Route: 048
     Dates: start: 202403, end: 202403
  2. LATUDA [Concomitant]
     Active Substance: LURASIDONE HYDROCHLORIDE
     Indication: Product used for unknown indication
     Dosage: UNK, UNKNOWN
     Route: 065

REACTIONS (7)
  - Presyncope [Recovered/Resolved]
  - Dysarthria [Recovered/Resolved]
  - Chest pain [Recovered/Resolved]
  - Cardiac disorder [Recovered/Resolved]
  - Hyperhidrosis [Recovered/Resolved]
  - Brain fog [Recovered/Resolved]
  - Nausea [Recovered/Resolved]

NARRATIVE: CASE EVENT DATE: 20240301
